FAERS Safety Report 7254163-3 (Version None)
Quarter: 2011Q1

REPORT INFORMATION
  Report Type: 
  Country: None (occurrence: None)
  Receive Date: 20110129
  Receipt Date: 20100210
  Transmission Date: 20110831
  Serious: No
  Sender: FDA-Public Use
  Company Number: US-ABBOTT-10P-163-0626264-00

PATIENT
  Sex: Female
  Weight: 116.22 kg

DRUGS (6)
  1. LYRICA [Concomitant]
     Indication: FIBROMYALGIA
  2. TRAMADOL HCL [Concomitant]
     Indication: PAIN
  3. HUMIRA [Suspect]
     Indication: PSORIATIC ARTHROPATHY
     Dates: start: 20091201
  4. CYMBALTA [Concomitant]
     Indication: DEPRESSION
  5. METHOCARBAMOL [Concomitant]
     Indication: MUSCLE RELAXANT THERAPY
  6. IBUPROFEN [Concomitant]
     Indication: PRODUCT USED FOR UNKNOWN INDICATION

REACTIONS (3)
  - PAIN [None]
  - JOINT STIFFNESS [None]
  - FATIGUE [None]
